FAERS Safety Report 18228519 (Version 1)
Quarter: 2020Q3

REPORT INFORMATION
  Report Type: Report from Study
  Country: ES (occurrence: ES)
  Receive Date: 20200903
  Receipt Date: 20200903
  Transmission Date: 20201103
  Serious: Yes (Hospitalization)
  Sender: FDA-Public Use
  Company Number: ES-SHIRE-ES202027815

PATIENT

DRUGS (3)
  1. TEICOPLANIN [Concomitant]
     Active Substance: TEICOPLANIN
     Indication: INFECTION
  2. IDURSULFASE [Suspect]
     Active Substance: IDURSULFASE
     Indication: MUCOPOLYSACCHARIDOSIS II
     Dosage: UNK, 1X/WEEK (EVERY WEEK)
     Route: 042
     Dates: start: 20160309
  3. VANCOMYCIN [Concomitant]
     Active Substance: VANCOMYCIN
     Indication: INFECTION

REACTIONS (2)
  - Vascular device infection [Recovered/Resolved]
  - Gastrointestinal pain [Unknown]

NARRATIVE: CASE EVENT DATE: 20200803
